FAERS Safety Report 9083286 (Version 1)
Quarter: 2013Q1

REPORT INFORMATION
  Report Type: Report from Study
  Country: US (occurrence: US)
  Receive Date: 20130130
  Receipt Date: 20130130
  Transmission Date: 20140127
  Serious: No
  Sender: FDA-Public Use
  Company Number: US-ABBOTT-12P-163-0967231-00

PATIENT
  Age: 52 Year
  Sex: Male

DRUGS (5)
  1. HUMIRA 40 MG/0.8 ML PEN [Suspect]
     Indication: CROHN^S DISEASE
     Dates: start: 20120601
  2. TRAMADOL [Concomitant]
     Indication: BACK INJURY
     Dosage: 50G EVERY 4-6 HOURS AS NEEDED
  3. MELOXICAM [Concomitant]
     Indication: TUBERCULOSIS
  4. ISONIAZID [Concomitant]
     Indication: TUBERCULOSIS
  5. MULTIVITAMIN [Concomitant]
     Indication: PRODUCT USED FOR UNKNOWN INDICATION
     Dosage: DAILY

REACTIONS (1)
  - Dry skin [Not Recovered/Not Resolved]
